FAERS Safety Report 24368373 (Version 1)
Quarter: 2024Q3

REPORT INFORMATION
  Report Type: Spontaneous
  Country: US (occurrence: US)
  Receive Date: 20240926
  Receipt Date: 20240926
  Transmission Date: 20241017
  Serious: No
  Sender: SANOFI AVENTIS
  Company Number: US-SA-2024SA249656

PATIENT
  Age: 2 Year
  Sex: Male

DRUGS (3)
  1. DUPIXENT [Suspect]
     Active Substance: DUPILUMAB
     Indication: Dermatitis atopic
     Dosage: 300 MG, QM
     Route: 058
  2. TACROLIMUS [Concomitant]
     Active Substance: TACROLIMUS
     Dosage: UNK UNK, PRN
  3. EUCRISA [Concomitant]
     Active Substance: CRISABOROLE
     Dosage: UNK UNK, PRN

REACTIONS (5)
  - Fungal infection [Unknown]
  - Dermatitis atopic [Unknown]
  - Erythema [Unknown]
  - Dry skin [Unknown]
  - Inappropriate schedule of product administration [Unknown]
